FAERS Safety Report 8771105 (Version 2)
Quarter: 2012Q4

REPORT INFORMATION
  Report Type: 
  Country: AU (occurrence: AU)
  Receive Date: 20120906
  Receipt Date: 20120928
  Transmission Date: 20130627
  Serious: Yes (Hospitalization, Other)
  Sender: FDA-Public Use
  Company Number: AU-ROCHE-1101292

PATIENT
  Age: 57 Year
  Sex: Male

DRUGS (5)
  1. MYCOPHENOLATE MOFETIL [Suspect]
     Indication: PROPHYLAXIS AGAINST TRANSPLANT REJECTION
     Route: 065
  2. BASILIXIMAB [Suspect]
     Indication: PROPHYLAXIS AGAINST TRANSPLANT REJECTION
  3. PREDNISOLONE [Suspect]
     Indication: PROPHYLAXIS AGAINST TRANSPLANT REJECTION
  4. TACROLIMUS [Suspect]
     Indication: PROPHYLAXIS AGAINST TRANSPLANT REJECTION
     Route: 065
  5. TACROLIMUS [Suspect]
     Dosage: recommenced
     Route: 065

REACTIONS (11)
  - Pneumonia [Recovering/Resolving]
  - Cytomegalovirus colitis [Unknown]
  - Microsporidia infection [Recovering/Resolving]
  - Fungaemia [Unknown]
  - Tubulointerstitial nephritis [Recovering/Resolving]
  - Drug ineffective [Unknown]
  - Kidney transplant rejection [Recovering/Resolving]
  - Fungal skin infection [Unknown]
  - Atypical mycobacterial pneumonia [Recovering/Resolving]
  - Clostridial infection [Unknown]
  - Pancytopenia [Recovered/Resolved]
